FAERS Safety Report 19349114 (Version 1)
Quarter: 2021Q2

REPORT INFORMATION
  Report Type: Spontaneous
  Country: US (occurrence: US)
  Receive Date: 20210529
  Receipt Date: 20210529
  Transmission Date: 20210717
  Serious: Yes (Disabling)
  Sender: FDA-Public Use
  Company Number: None

PATIENT
  Age: 9 Year
  Sex: Male
  Weight: 32.85 kg

DRUGS (9)
  1. VITAMIN C [Concomitant]
     Active Substance: ASCORBIC ACID
  2. SKIN FRIEND AM/PM MULTIVITAMIN [Concomitant]
  3. PROBIOTIC [Concomitant]
     Active Substance: PROBIOTICS NOS
  4. VIT D3/K2 [Concomitant]
  5. IBUPROPHEN [Concomitant]
     Active Substance: IBUPROFEN
  6. ELOCON [Suspect]
     Active Substance: MOMETASONE FUROATE
     Indication: ECZEMA
     Dosage: ?          QUANTITY:45 GRAMS;OTHER FREQUENCY:APPLY DAILY;?
     Route: 061
     Dates: start: 20201104, end: 20210112
  7. IONIC ZINC [Concomitant]
  8. BENADRYL [Concomitant]
     Active Substance: DIPHENHYDRAMINE HYDROCHLORIDE
  9. ACETAMINOPHEN. [Concomitant]
     Active Substance: ACETAMINOPHEN

REACTIONS (12)
  - Erythema [None]
  - Rash [None]
  - Skin hypertrophy [None]
  - Rebound effect [None]
  - Anxiety [None]
  - Alopecia [None]
  - Insomnia [None]
  - Body temperature fluctuation [None]
  - Steroid withdrawal syndrome [None]
  - Neuralgia [None]
  - Drug dependence [None]
  - Lymphadenopathy [None]

NARRATIVE: CASE EVENT DATE: 20210112
